FAERS Safety Report 24113673 (Version 1)
Quarter: 2024Q3

REPORT INFORMATION
  Report Type: Report from Study
  Country: CA (occurrence: CA)
  Receive Date: 20240720
  Receipt Date: 20240720
  Transmission Date: 20241017
  Serious: Yes (Hospitalization)
  Sender: ABBVIE
  Company Number: CA-ABBVIE-5843861

PATIENT
  Age: 53 Year

DRUGS (1)
  1. RINVOQ [Suspect]
     Active Substance: UPADACITINIB
     Indication: Colitis ulcerative
     Dosage: LAST ADMIN DATE 2024
     Route: 048
     Dates: start: 20240229

REACTIONS (2)
  - Uterine dilation and curettage [Unknown]
  - Incisional drainage [Unknown]

NARRATIVE: CASE EVENT DATE: 20240101
